FAERS Safety Report 21331948 (Version 1)
Quarter: 2022Q3

REPORT INFORMATION
  Report Type: Spontaneous
  Country: CN (occurrence: CN)
  Receive Date: 20220914
  Receipt Date: 20220914
  Transmission Date: 20221027
  Serious: Yes (Hospitalization)
  Sender: FDA-Public Use
  Company Number: CN-JNJFOC-20220913718

PATIENT
  Age: 70 Year
  Sex: Male
  Weight: 72.5 kg

DRUGS (7)
  1. ERLEADA [Suspect]
     Active Substance: APALUTAMIDE
     Indication: Prostate cancer
     Route: 048
     Dates: start: 20220720, end: 20220821
  2. DOCETAXEL [Concomitant]
     Active Substance: DOCETAXEL
     Indication: Prostate cancer
     Route: 041
     Dates: start: 20220414
  3. DOCETAXEL [Concomitant]
     Active Substance: DOCETAXEL
     Route: 041
     Dates: start: 20220809, end: 20220810
  4. GOSERELIN ACETATE [Concomitant]
     Active Substance: GOSERELIN ACETATE
     Indication: Prostate cancer
     Route: 058
     Dates: start: 20220714
  5. GOSERELIN ACETATE [Concomitant]
     Active Substance: GOSERELIN ACETATE
     Route: 058
     Dates: start: 20220810, end: 20220810
  6. KANGFUXIN [Concomitant]
  7. DOXYCYCLINE [Concomitant]
     Active Substance: DOXYCYCLINE
     Indication: Anti-infective therapy
     Route: 048

REACTIONS (1)
  - Epidermolysis bullosa [Not Recovered/Not Resolved]

NARRATIVE: CASE EVENT DATE: 20220821
